FAERS Safety Report 9230227 (Version 2)
Quarter: 2013Q2

REPORT INFORMATION
  Report Type: Spontaneous
  Country: US (occurrence: None)
  Receive Date: 20130411
  Receipt Date: 20130419
  Transmission Date: 20140414
  Serious: Yes (Hospitalization)
  Sender: FDA-Public Use
  Company Number: TIF2013A00058

PATIENT
  Age: 86 Year
  Sex: Female

DRUGS (7)
  1. LIMPIDEX [Suspect]
     Indication: PROPHYLAXIS AGAINST GASTROINTESTINAL ULCER
     Dosage: 30 MG (30 MG, 1 IN 1 D)
     Dates: start: 20121111, end: 20130313
  2. CARDIOASPIRIN (ACETYLSALICYLIC ACID) [Suspect]
     Indication: MYOCARDIAL ISCHAEMIA
     Dosage: 100 MG (100 MG, 1 IN 1 D) ORAL
     Route: 048
     Dates: start: 20121111, end: 20130313
  3. ZYLORIC (ALLOPURINOL) [Concomitant]
  4. LASIX (FUROSEMIDE) [Concomitant]
  5. NORVASC (AMLODIPINE BESILATE) [Concomitant]
  6. NITROSYLON (GLYCERYL TRINITRATE) [Concomitant]
  7. CORDARONE (AMIODARONE HYDROCHLORIDE) [Concomitant]

REACTIONS (5)
  - Diarrhoea [None]
  - Electrolyte imbalance [None]
  - Renal failure chronic [None]
  - Retching [None]
  - Vomiting [None]
